FAERS Safety Report 9831836 (Version 2)
Quarter: 2014Q1

REPORT INFORMATION
  Report Type: Report from Study
  Country: CA (occurrence: CA)
  Receive Date: 20140121
  Receipt Date: 20140121
  Transmission Date: 20141002
  Serious: Yes (Other)
  Sender: FDA-Public Use
  Company Number: CA-JNJFOC-20131202603

PATIENT
  Age: 48 Year
  Sex: Female
  Weight: 70.31 kg

DRUGS (7)
  1. REMICADE [Suspect]
     Indication: CROHN^S DISEASE
     Route: 042
     Dates: start: 20130103
  2. REMICADE [Suspect]
     Indication: CROHN^S DISEASE
     Route: 042
     Dates: start: 201312
  3. ASACOL [Concomitant]
     Route: 065
  4. DOCUSATE [Concomitant]
     Route: 065
  5. IMURAN [Concomitant]
     Route: 065
  6. TRIMEBUTINE [Concomitant]
     Route: 065
  7. WELLBUTRIN [Concomitant]
     Route: 065

REACTIONS (1)
  - Fistula [Unknown]
